FAERS Safety Report 11580855 (Version 1)
Quarter: 2015Q4

REPORT INFORMATION
  Report Type: Spontaneous
  Country: US (occurrence: US)
  Receive Date: 20151001
  Receipt Date: 20151001
  Transmission Date: 20160304
  Serious: No
  Sender: FDA-Public Use
  Company Number: US-GLENMARK PHARMACEUTICALS INC, USA.-2014GMK011834

PATIENT
  Sex: Female

DRUGS (3)
  1. CLOTRIMAZOLE CREAM [Suspect]
     Active Substance: CLOTRIMAZOLE
     Dosage: UNK
     Route: 061
  2. CLOTRIMAZOLE CREAM [Suspect]
     Active Substance: CLOTRIMAZOLE
  3. CLOTRIMAZOLE CREAM [Suspect]
     Active Substance: CLOTRIMAZOLE

REACTIONS (1)
  - Product use issue [Unknown]
